FAERS Safety Report 4972209-X (Version None)
Quarter: 2006Q2

REPORT INFORMATION
  Report Type: 
  Country: None (occurrence: None)
  Receive Date: 20060413
  Receipt Date: 20060405
  Transmission Date: 20061013
  Serious: Yes (Hospitalization)
  Sender: FDA-Public Use
  Company Number: JP-JPN-A200601146

PATIENT
  Age: 81 Year
  Sex: Male
  Weight: 54 kg

DRUGS (2)
  1. GI198745 [Suspect]
     Indication: BENIGN PROSTATIC HYPERPLASIA
     Route: 048
     Dates: start: 20060322
  2. HARNAL [Suspect]
     Indication: BENIGN PROSTATIC HYPERPLASIA
     Dosage: .2MG PER DAY
     Route: 048
     Dates: start: 20050509

REACTIONS (2)
  - CORONARY ARTERY STENOSIS [None]
  - MYOCARDIAL INFARCTION [None]
